FAERS Safety Report 19460391 (Version 2)
Quarter: 2021Q3

REPORT INFORMATION
  Report Type: Spontaneous
  Country: IT (occurrence: IT)
  Receive Date: 20210625
  Receipt Date: 20210702
  Transmission Date: 20211014
  Serious: Yes (Hospitalization)
  Sender: FDA-Public Use
  Company Number: IT-DRREDDYS-SPO/ITL/21/0136752

PATIENT
  Age: 76 Year
  Sex: Male
  Weight: 75 kg

DRUGS (9)
  1. CLAVULANIC ACID [Concomitant]
     Active Substance: CLAVULANIC ACID
     Indication: TOOTHACHE
  2. AMOXICILLIN. [Interacting]
     Active Substance: AMOXICILLIN
     Indication: GINGIVITIS
     Dosage: INCREASED
  3. AMOXICILLIN. [Interacting]
     Active Substance: AMOXICILLIN
     Indication: TOOTHACHE
  4. CLAVULANIC ACID [Concomitant]
     Active Substance: CLAVULANIC ACID
     Indication: GINGIVITIS
  5. IBUPROFEN. [Interacting]
     Active Substance: IBUPROFEN
     Indication: TOOTH INFECTION
  6. AMOXICILLIN. [Interacting]
     Active Substance: AMOXICILLIN
     Indication: TOOTH INFECTION
  7. CLAVULANIC ACID [Concomitant]
     Active Substance: CLAVULANIC ACID
     Indication: TOOTH INFECTION
  8. IBUPROFEN. [Suspect]
     Active Substance: IBUPROFEN
     Indication: GINGIVITIS
     Dosage: HIGH DOSE
  9. IBUPROFEN. [Interacting]
     Active Substance: IBUPROFEN
     Indication: TOOTHACHE

REACTIONS (5)
  - Drug interaction [Recovered/Resolved]
  - Encephalitis [Recovered/Resolved]
  - Meningitis aseptic [Recovered/Resolved]
  - Condition aggravated [Recovered/Resolved]
  - Pleocytosis [Recovered/Resolved]
